FAERS Safety Report 6059909-8 (Version None)
Quarter: 2009Q1

REPORT INFORMATION
  Report Type: 
  Country: None (occurrence: None)
  Receive Date: 20090130
  Receipt Date: 20090121
  Transmission Date: 20090719
  Serious: Yes (Hospitalization)
  Sender: FDA-Public Use
  Company Number: FR-WYE-H07909409

PATIENT
  Sex: Male

DRUGS (2)
  1. INIPOMP [Suspect]
     Indication: GASTROOESOPHAGEAL REFLUX DISEASE
     Route: 048
     Dates: start: 20081001, end: 20081102
  2. MILDAC [Interacting]
     Indication: DEPRESSION
     Dosage: UNKNOWN
     Route: 048

REACTIONS (7)
  - ABDOMINAL PAIN UPPER [None]
  - DIARRHOEA [None]
  - DRUG INTERACTION [None]
  - HEPATITIS ACUTE [None]
  - LIVER INJURY [None]
  - NAUSEA [None]
  - PAIN [None]
